FAERS Safety Report 12874410 (Version 7)
Quarter: 2017Q3

REPORT INFORMATION
  Report Type: Report from Study
  Country: US (occurrence: US)
  Receive Date: 20161021
  Receipt Date: 20170808
  Transmission Date: 20171127
  Serious: Yes (Hospitalization)
  Sender: FDA-Public Use
  Company Number: US-ACTELION-A-US2016-143950

PATIENT
  Age: 58 Year
  Sex: Female
  Weight: 99.77 kg

DRUGS (4)
  1. ADEMPAS [Concomitant]
     Active Substance: RIOCIGUAT
  2. OPSUMIT [Suspect]
     Active Substance: MACITENTAN
     Indication: PULMONARY ARTERIAL HYPERTENSION
     Dosage: 10 MG, QD
     Route: 048
     Dates: start: 20160825
  3. ORENITRAM [Concomitant]
     Active Substance: TREPROSTINIL
  4. REMODULIN [Concomitant]
     Active Substance: TREPROSTINIL
     Route: 058

REACTIONS (13)
  - Device related infection [Unknown]
  - Haemoglobin decreased [Unknown]
  - Infusion site swelling [Unknown]
  - Pyrexia [Unknown]
  - Transfusion [Unknown]
  - Infusion site pain [Unknown]
  - Pleural effusion [Unknown]
  - Infusion site warmth [Unknown]
  - Sepsis [Unknown]
  - Anaemia [Unknown]
  - Chest pain [Unknown]
  - Infusion site erythema [Unknown]
  - Infusion site induration [Unknown]
